FAERS Safety Report 24072809 (Version 1)
Quarter: 2024Q3

REPORT INFORMATION
  Report Type: Spontaneous
  Country: US (occurrence: US)
  Receive Date: 20240710
  Receipt Date: 20240710
  Transmission Date: 20241017
  Serious: No
  Sender: SANOFI AVENTIS
  Company Number: US-SANOFI-02113496

PATIENT
  Age: 64 Year
  Sex: Female

DRUGS (1)
  1. DUPIXENT [Suspect]
     Active Substance: DUPILUMAB
     Indication: Eosinophilic pneumonia
     Dosage: 300 MG QOW

REACTIONS (7)
  - Eye swelling [Unknown]
  - Periorbital swelling [Unknown]
  - Condition aggravated [Unknown]
  - Eye irritation [Unknown]
  - Lacrimation increased [Unknown]
  - Swelling of eyelid [Unknown]
  - Off label use [Unknown]

NARRATIVE: CASE EVENT DATE: 20240627
